FAERS Safety Report 9051081 (Version 1)
Quarter: 2013Q1

REPORT INFORMATION
  Report Type: Spontaneous
  Country: US (occurrence: US)
  Receive Date: 20130206
  Receipt Date: 20130206
  Transmission Date: 20140127
  Serious: No
  Sender: FDA-Public Use
  Company Number: US-PFIZER INC-2013047120

PATIENT
  Age: 78 Year
  Sex: Female
  Weight: 70.3 kg

DRUGS (2)
  1. ADVIL PM [Suspect]
     Indication: INSOMNIA
     Dosage: 1 TABLET, ONCE A DAY (EVERY NIGHT)
     Route: 048
     Dates: start: 201212, end: 201301
  2. ATACAND [Concomitant]
     Indication: HYPERTENSION
     Dosage: 16MG, ONE TABLET DAILY

REACTIONS (4)
  - Nightmare [Recovered/Resolved]
  - Hypertension [Recovered/Resolved]
  - Tremor [Recovered/Resolved]
  - Feeling abnormal [Recovered/Resolved]
